FAERS Safety Report 22706034 (Version 2)
Quarter: 2024Q2

REPORT INFORMATION
  Report Type: Spontaneous
  Country: JP (occurrence: JP)
  Receive Date: 20230714
  Receipt Date: 20240607
  Transmission Date: 20240716
  Serious: Yes (Hospitalization, Other)
  Sender: FDA-Public Use
  Company Number: JP-ORG100014127-2023000734

PATIENT
  Age: 36 Year
  Sex: Female

DRUGS (1)
  1. METYRAPONE [Suspect]
     Active Substance: METYRAPONE
     Indication: Pituitary-dependent Cushing^s syndrome

REACTIONS (4)
  - Premature delivery [Recovered/Resolved]
  - Pre-eclampsia [Recovered/Resolved]
  - Hypertensive nephropathy [Not Recovered/Not Resolved]
  - Exposure during pregnancy [Recovered/Resolved]
